FAERS Safety Report 5780213-7 (Version None)
Quarter: 2008Q2

REPORT INFORMATION
  Report Type: 
  Country: None (occurrence: None)
  Receive Date: 20080620
  Receipt Date: 20080619
  Transmission Date: 20081010
  Serious: Yes (Hospitalization)
  Sender: FDA-Public Use
  Company Number: LB-WYE-H04586408

PATIENT
  Age: 78 Year
  Sex: Male
  Weight: 85 kg

DRUGS (4)
  1. TIGECYCLINE [Suspect]
     Indication: PNEUMONIA
     Route: 042
     Dates: start: 20080501, end: 20080514
  2. TIGECYCLINE [Suspect]
     Indication: ACINETOBACTER INFECTION
  3. CIPROFLOXACIN HCL [Concomitant]
     Indication: PSEUDOMONAS INFECTION
     Route: 041
  4. CIPROFLOXACIN HCL [Concomitant]
     Indication: URINARY TRACT INFECTION

REACTIONS (1)
  - RENAL TUBULAR NECROSIS [None]
